FAERS Safety Report 9537034 (Version 1)
Quarter: 2013Q3

REPORT INFORMATION
  Report Type: Spontaneous
  Country: US (occurrence: None)
  Receive Date: 20130918
  Receipt Date: 20130918
  Transmission Date: 20140515
  Serious: Yes (Life-Threatening, Hospitalization)
  Sender: FDA-Public Use
  Company Number: None

PATIENT
  Age: 66 Year
  Sex: Male
  Weight: 92.8 kg

DRUGS (16)
  1. FILGRASTIM [Suspect]
     Dosage: 480 MCG QD SUBCUTANEOUS
     Route: 058
     Dates: start: 20110615, end: 20110618
  2. HCTZ, [Concomitant]
  3. AMLODIPINE, VALSARTAN [Concomitant]
  4. SIMVASTATIN, [Concomitant]
  5. ALLOPURINOL, [Concomitant]
  6. DIPHENHYDRAMINE, [Concomitant]
  7. AETAMINOPHEN, [Concomitant]
  8. PIPERACILLIN/ TAZOBACTAM, [Concomitant]
  9. LIDOCAINE, [Concomitant]
  10. MORPHINE, [Concomitant]
  11. POTASSIUM CHLORIDE, [Concomitant]
  12. OXYCODONE, [Concomitant]
  13. VANCOMYCIN, [Concomitant]
  14. HYDROMORPHONE, [Concomitant]
  15. HYDRALAZINE [Concomitant]
  16. DEXAMETHASONE [Concomitant]

REACTIONS (3)
  - Drug prescribing error [None]
  - Febrile neutropenia [None]
  - Infection [None]
